FAERS Safety Report 5161419-7 (Version None)
Quarter: 2006Q4

REPORT INFORMATION
  Report Type: 
  Country: None (occurrence: None)
  Receive Date: 20061130
  Receipt Date: 20060802
  Transmission Date: 20070319
  Serious: No
  Sender: FDA-Public Use
  Company Number: US-GLAXOSMITHKLINE-A0614676A

PATIENT
  Age: 42 Year
  Sex: Female

DRUGS (2)
  1. WELLBUTRIN XL [Suspect]
     Indication: ANXIETY
     Dosage: 150MG PER DAY
     Route: 048
     Dates: start: 20060724, end: 20060802
  2. XANAX [Concomitant]

REACTIONS (10)
  - ANOREXIA [None]
  - ANXIETY [None]
  - DYSPNOEA [None]
  - NAUSEA [None]
  - PANIC ATTACK [None]
  - PARAESTHESIA [None]
  - PRURITUS [None]
  - THROAT TIGHTNESS [None]
  - TINNITUS [None]
  - TREMOR [None]
